FAERS Safety Report 10554196 (Version 1)
Quarter: 2014Q4

REPORT INFORMATION
  Report Type: Report from Study
  Country: CA (occurrence: CA)
  Receive Date: 20141030
  Receipt Date: 20141030
  Transmission Date: 20150529
  Serious: Yes (Other)
  Sender: FDA-Public Use
  Company Number: CA-JNJFOC-20141015534

PATIENT
  Age: 40 Year
  Sex: Female

DRUGS (1)
  1. SIMPONI [Suspect]
     Active Substance: GOLIMUMAB
     Indication: COLITIS ULCERATIVE
     Dosage: TOTAL 7 INJECTIONS
     Route: 058
     Dates: start: 20140117, end: 20140719

REACTIONS (2)
  - Therapeutic response decreased [Unknown]
  - Colectomy [Unknown]

NARRATIVE: CASE EVENT DATE: 20140601
